FAERS Safety Report 23587401 (Version 1)
Quarter: 2024Q1

REPORT INFORMATION
  Report Type: Spontaneous
  Country: CN (occurrence: CN)
  Receive Date: 20240301
  Receipt Date: 20240301
  Transmission Date: 20240410
  Serious: Yes (Other)
  Sender: FDA-Public Use
  Company Number: CN-PFIZER INC-PV202400028432

PATIENT
  Age: 68 Year
  Sex: Male

DRUGS (1)
  1. TYGACIL [Suspect]
     Active Substance: TIGECYCLINE
     Indication: Pneumonia bacterial
     Dosage: 50 MG, 2X/DAY
     Route: 041
     Dates: start: 20240223, end: 20240223

REACTIONS (7)
  - Rash [Recovering/Resolving]
  - Pruritus [Recovering/Resolving]
  - Urticaria [Recovering/Resolving]
  - Dermatitis allergic [Recovering/Resolving]
  - Drug hypersensitivity [Recovering/Resolving]
  - Somnolence [Unknown]
  - Blood pressure increased [Recovering/Resolving]

NARRATIVE: CASE EVENT DATE: 20240223
